FAERS Safety Report 13032165 (Version 3)
Quarter: 2017Q1

REPORT INFORMATION
  Report Type: Spontaneous
  Country: JP (occurrence: JP)
  Receive Date: 20161215
  Receipt Date: 20170131
  Transmission Date: 20170428
  Serious: Yes (Hospitalization, Other)
  Sender: FDA-Public Use
  Company Number: JP-SA-2016SA226781

PATIENT
  Age: 68 Year
  Sex: Male

DRUGS (3)
  1. AVASTIN [Concomitant]
     Active Substance: BEVACIZUMAB
     Route: 065
  2. ELPLAT [Suspect]
     Active Substance: OXALIPLATIN
     Indication: RECTAL CANCER
     Route: 041
  3. CAPECITABINE. [Concomitant]
     Active Substance: CAPECITABINE
     Route: 065

REACTIONS (7)
  - Tumour perforation [Unknown]
  - Joint crepitation [Unknown]
  - Disseminated intravascular coagulation [Unknown]
  - Altered state of consciousness [Unknown]
  - Septic shock [Unknown]
  - Pain [Unknown]
  - Necrotising fasciitis [Unknown]
